FAERS Safety Report 8634043 (Version 4)
Quarter: 2014Q2

REPORT INFORMATION
  Report Type: Spontaneous
  Country: US (occurrence: US)
  Receive Date: 20120626
  Receipt Date: 20140416
  Transmission Date: 20141212
  Serious: Yes (Hospitalization, Disabling)
  Sender: FDA-Public Use
  Company Number: US-ASTRAZENECA-2012SE36235

PATIENT
  Age: 60 Year
  Sex: Female

DRUGS (17)
  1. NEXIUM [Suspect]
     Indication: GASTROOESOPHAGEAL REFLUX DISEASE
     Route: 048
  2. NEXIUM [Suspect]
     Indication: GASTROOESOPHAGEAL REFLUX DISEASE
     Route: 048
     Dates: start: 20081018
  3. NEXIUM [Suspect]
     Indication: GASTROOESOPHAGEAL REFLUX DISEASE
     Route: 048
     Dates: start: 20090511
  4. HYDROCHLOROTHIAZIDE [Concomitant]
     Indication: BLOOD PRESSURE ABNORMAL
  5. ATORVASTATIN [Concomitant]
     Indication: BLOOD CHOLESTEROL ABNORMAL
  6. MAGNESIUM [Concomitant]
     Indication: MUSCLE SPASMS
  7. GABAPENTIN [Concomitant]
     Route: 048
     Dates: start: 20081121
  8. CELEBREX [Concomitant]
     Dosage: TAKE 3 CS WIH A SMALL SIP OF WATER 1 CAP BEFORE SURGERY AND 1 CAP BID AFTER THAT
     Route: 048
     Dates: start: 20070822
  9. SULFAMETH/TRIMETHOPRIM [Concomitant]
     Dosage: 800/160 TABS  TAKE 1 TAB PO Q 12 H
     Route: 048
     Dates: start: 20080320
  10. AMITRIPTYLINE [Concomitant]
     Route: 048
     Dates: start: 20050725
  11. METOCLOPRAMIDE [Concomitant]
     Route: 048
     Dates: start: 20050801
  12. DICYCLOMINE [Concomitant]
     Route: 048
     Dates: start: 20050801
  13. MELOXICAM [Concomitant]
     Indication: PAIN
     Route: 048
     Dates: start: 20101104
  14. PROMETHAZINE [Concomitant]
     Route: 048
     Dates: start: 20120705
  15. LISINOPRIL [Concomitant]
  16. METOPROLOL [Concomitant]
  17. ASPIRIN [Concomitant]

REACTIONS (7)
  - Chest pain [Unknown]
  - Ill-defined disorder [Unknown]
  - Vomiting [Unknown]
  - Osteoporosis [Unknown]
  - Multiple fractures [Unknown]
  - Arthritis [Unknown]
  - Chronic obstructive pulmonary disease [Unknown]
